FAERS Safety Report 7459239-3 (Version None)
Quarter: 2011Q2

REPORT INFORMATION
  Report Type: 
  Country: None (occurrence: None)
  Receive Date: 20110505
  Receipt Date: 20110421
  Transmission Date: 20111010
  Serious: Yes (Other)
  Sender: FDA-Public Use
  Company Number: IN-RANBAXY-2011R1-43957

PATIENT
  Age: 43 Year
  Sex: Female

DRUGS (1)
  1. ONDANSETRON SOLUTION FOR INJECTION 4MG/2ML [Suspect]
     Indication: PRODUCT USED FOR UNKNOWN INDICATION
     Dosage: 4 MG
     Route: 042

REACTIONS (1)
  - SINUS BRADYCARDIA [None]
